FAERS Safety Report 10222848 (Version 1)
Quarter: 2014Q2

REPORT INFORMATION
  Report Type: Spontaneous
  Country: US (occurrence: US)
  Receive Date: 20140607
  Receipt Date: 20140607
  Transmission Date: 20141212
  Serious: Yes (Other)
  Sender: FDA-Public Use
  Company Number: US-ELI_LILLY_AND_COMPANY-US201406000189

PATIENT
  Sex: Female

DRUGS (2)
  1. HUMALOG 25% LISPRO, 75% NPL [Suspect]
     Indication: TYPE 2 DIABETES MELLITUS
     Dosage: 27 U, EACH MORNING
     Route: 065
     Dates: start: 201311
  2. HUMALOG 25% LISPRO, 75% NPL [Suspect]
     Dosage: 16 U, EACH EVENING
     Route: 065
     Dates: start: 201311

REACTIONS (3)
  - Tendon rupture [Not Recovered/Not Resolved]
  - Femoral nerve injury [Not Recovered/Not Resolved]
  - Mobility decreased [Not Recovered/Not Resolved]
